FAERS Safety Report 6287847-4 (Version None)
Quarter: 2009Q3

REPORT INFORMATION
  Report Type: 
  Country: None (occurrence: None)
  Receive Date: 20090729
  Receipt Date: 20070613
  Transmission Date: 20100115
  Serious: Yes (Hospitalization, Other)
  Sender: FDA-Public Use
  Company Number: US-ASTRAZENECA-2006UW21178

PATIENT
  Age: 19395 Day
  Sex: Female
  Weight: 126.1 kg

DRUGS (15)
  1. SEROQUEL [Suspect]
     Indication: PSYCHOTIC DISORDER
     Dosage: 25-600 MG
     Route: 048
     Dates: start: 20010801
  2. SEROQUEL [Suspect]
     Dosage: 300-600MG
     Route: 048
     Dates: start: 20020101
  3. HALDOL [Concomitant]
  4. THORAZINE [Concomitant]
  5. TRILAFON [Concomitant]
  6. ZYPREXA [Concomitant]
  7. AMARYL [Concomitant]
     Dosage: 2-4 MG
     Route: 048
     Dates: start: 20030906
  8. DIOVAN HCT [Concomitant]
     Dosage: 80 MG, 160/12.5 MG FLUCTUATING
     Route: 048
     Dates: start: 20010319
  9. KLONOPIN [Concomitant]
     Dosage: 1-5 MG
     Dates: start: 20010801
  10. METFORMIN [Concomitant]
     Route: 048
     Dates: start: 20030929
  11. SINGULAIR [Concomitant]
     Route: 048
     Dates: start: 20010122
  12. PLAVIX [Concomitant]
     Route: 048
     Dates: start: 20010319
  13. ATENOLOL [Concomitant]
     Route: 048
     Dates: start: 19991119
  14. PROZAC [Concomitant]
     Dosage: 20-40 MG
     Route: 048
     Dates: start: 20010801
  15. ANAFRANIL [Concomitant]
     Route: 048
     Dates: start: 20030906

REACTIONS (5)
  - DIABETES MELLITUS [None]
  - DIABETIC NEUROPATHY [None]
  - HYPERGLYCAEMIA [None]
  - HYPOGLYCAEMIA [None]
  - TYPE 2 DIABETES MELLITUS [None]
